FAERS Safety Report 7052854-0 (Version None)
Quarter: 2010Q4

REPORT INFORMATION
  Report Type: 
  Country: None (occurrence: None)
  Receive Date: 20101019
  Receipt Date: 20101006
  Transmission Date: 20110411
  Serious: Yes (Hospitalization)
  Sender: FDA-Public Use
  Company Number: DE-MYLANLABS-2009S1000715

PATIENT
  Age: 42 Year
  Sex: Male

DRUGS (8)
  1. SIMVASTATIN [Interacting]
     Indication: HYPERCHOLESTEROLAEMIA
     Route: 048
     Dates: start: 20080701, end: 20081023
  2. IBUPROFEN [Interacting]
     Indication: PAIN
     Route: 048
     Dates: start: 20081019, end: 20081021
  3. KATADOLON /00890102/ [Suspect]
     Indication: PAIN
     Route: 048
     Dates: start: 20080717, end: 20081016
  4. DICLAC [Interacting]
     Indication: PAIN
     Route: 048
     Dates: start: 20081017, end: 20081018
  5. JANUVIA [Interacting]
     Indication: TYPE 2 DIABETES MELLITUS
     Route: 048
     Dates: start: 20070101, end: 20081023
  6. METFORMIN HCL [Concomitant]
     Indication: TYPE 2 DIABETES MELLITUS
     Route: 048
     Dates: start: 20030101, end: 20081023
  7. PANTOPRAZOLE SODIUM [Concomitant]
     Indication: NAUSEA
     Route: 048
     Dates: start: 20081022, end: 20081023
  8. VIAGRA [Concomitant]
     Indication: ERECTILE DYSFUNCTION
     Route: 048
     Dates: start: 20050101

REACTIONS (2)
  - DRUG INTERACTION [None]
  - HEPATIC ENZYME INCREASED [None]
